FAERS Safety Report 23559046 (Version 1)
Quarter: 2024Q1

REPORT INFORMATION
  Report Type: Spontaneous
  Country: US (occurrence: None)
  Receive Date: 20240223
  Receipt Date: 20240223
  Transmission Date: 20240410
  Serious: Yes (Other)
  Sender: FDA-Public Use
  Company Number: None

PATIENT
  Age: 39 Year
  Sex: Female
  Weight: 79.38 kg

DRUGS (2)
  1. BUPROPION [Suspect]
     Active Substance: BUPROPION
  2. LEVOTHYROXINE [Concomitant]
     Active Substance: LEVOTHYROXINE\LEVOTHYROXINE SODIUM

REACTIONS (3)
  - Anembryonic gestation [None]
  - Abortion [None]
  - Exposure during pregnancy [None]

NARRATIVE: CASE EVENT DATE: 20240119
